FAERS Safety Report 12053934 (Version 1)
Quarter: 2016Q1

REPORT INFORMATION
  Report Type: Spontaneous
  Country: US (occurrence: US)
  Receive Date: 20160209
  Receipt Date: 20160209
  Transmission Date: 20160526
  Serious: No
  Sender: FDA-Public Use
  Company Number: US-SA-2016SA002243

PATIENT
  Sex: Female

DRUGS (2)
  1. ALIROCUMAB PREFILLED PEN [Concomitant]
     Active Substance: ALIROCUMAB
  2. PRALUENT [Suspect]
     Active Substance: ALIROCUMAB
     Route: 065

REACTIONS (6)
  - Oral pain [Unknown]
  - Rash generalised [Unknown]
  - Skin haemorrhage [Unknown]
  - Oropharyngeal pain [Unknown]
  - Lip pain [Unknown]
  - Pruritus [Unknown]
